FAERS Safety Report 15144589 (Version 2)
Quarter: 2018Q3

REPORT INFORMATION
  Report Type: Spontaneous
  Country: DE (occurrence: DE)
  Receive Date: 20180713
  Receipt Date: 20180820
  Transmission Date: 20181010
  Serious: Yes (Hospitalization, Other)
  Sender: FDA-Public Use
  Company Number: DE-SA-2018SA177353

PATIENT
  Age: 79 Year
  Sex: Female
  Weight: 65 kg

DRUGS (13)
  1. VEMURAFENIB. [Suspect]
     Active Substance: VEMURAFENIB
     Indication: MALIGNANT MELANOMA
     Dosage: 1920 MG, QD
     Route: 048
     Dates: start: 20180312, end: 20180320
  2. METRONIDAZOL [METRONIDAZOLE] [Concomitant]
     Indication: MALIGNANT MELANOMA
     Dosage: 60 MG
     Dates: start: 20180412, end: 20180418
  3. MEKINIST [Concomitant]
     Active Substance: TRAMETINIB DIMETHYL SULFOXIDE
  4. CEFTRIAXONE SODIUM. [Suspect]
     Active Substance: CEFTRIAXONE SODIUM
     Indication: INFECTION
     Dosage: UNK
     Dates: start: 20180321, end: 20180325
  5. COBIMETINIB. [Suspect]
     Active Substance: COBIMETINIB
     Dosage: 60 MG, QD
     Route: 048
     Dates: start: 20180403
  6. ASPIRIN. [Concomitant]
     Active Substance: ASPIRIN
     Dosage: 100 MG, QD
     Route: 048
  7. TAFINLAR [Concomitant]
     Active Substance: DABRAFENIB MESYLATE
  8. COBIMETINIB. [Suspect]
     Active Substance: COBIMETINIB
     Indication: MALIGNANT MELANOMA
     Dosage: 60 MG, QD
     Route: 048
     Dates: start: 20180312, end: 20180320
  9. ENOXAPARIN SODIUM. [Suspect]
     Active Substance: ENOXAPARIN SODIUM
     Indication: ATRIAL FIBRILLATION
     Dosage: 1000 IU, QD
     Route: 058
     Dates: start: 20180403, end: 20180417
  10. ENOXAPARIN SODIUM. [Suspect]
     Active Substance: ENOXAPARIN SODIUM
     Indication: PULMONARY EMBOLISM
     Dosage: 100000 IU, QD
     Route: 058
     Dates: start: 20180608, end: 20180611
  11. VEMURAFENIB. [Suspect]
     Active Substance: VEMURAFENIB
     Dosage: 1920 UNK
     Route: 048
     Dates: start: 20180403
  12. CANDESARTAN. [Concomitant]
     Active Substance: CANDESARTAN
     Indication: HYPERTENSION
     Dosage: 16 MG, QD
     Route: 048
  13. TORASEMID [Concomitant]
     Active Substance: TORSEMIDE
     Indication: HYPERTENSION
     Dosage: 5 MG, QD
     Route: 048
     Dates: start: 201803

REACTIONS (19)
  - Stevens-Johnson syndrome [Recovered/Resolved]
  - Hypokalaemia [Recovered/Resolved]
  - Anaemia [Recovering/Resolving]
  - Syncope [Recovering/Resolving]
  - Pulmonary embolism [Unknown]
  - Helicobacter infection [Recovered/Resolved]
  - Erythema multiforme [Recovered/Resolved]
  - Melaena [Not Recovered/Not Resolved]
  - Upper gastrointestinal haemorrhage [Unknown]
  - Decreased appetite [Not Recovered/Not Resolved]
  - Dyspnoea [Recovered/Resolved]
  - Gastric ulcer [Recovered/Resolved]
  - Infection [Recovering/Resolving]
  - Fibrin D dimer increased [Unknown]
  - Nausea [Not Recovered/Not Resolved]
  - Deep vein thrombosis [Unknown]
  - Atrial fibrillation [Recovered/Resolved]
  - Dysphagia [Unknown]
  - Melaena [Recovered/Resolved]

NARRATIVE: CASE EVENT DATE: 20180320
